FAERS Safety Report 7864216-4 (Version None)
Quarter: 2011Q4

REPORT INFORMATION
  Report Type: 
  Country: None (occurrence: None)
  Receive Date: 20111028
  Receipt Date: 20111024
  Transmission Date: 20120403
  Serious: Yes (Other)
  Sender: FDA-Public Use
  Company Number: CA-PFIZER INC-2011243251

PATIENT
  Age: 64 Year
  Sex: Female

DRUGS (3)
  1. NOVO-RISEDRONATE [Concomitant]
     Indication: BONE DENSITY ABNORMAL
     Dosage: 35 MG, WEEKLY
  2. XALATAN [Suspect]
     Indication: GLAUCOMA
     Dosage: 1 DROP IN BOTH EYES ONCE DAILY AT BEDTIME
     Route: 047
     Dates: start: 20110401
  3. AZOPT [Concomitant]
     Dosage: UNK

REACTIONS (1)
  - EYE HAEMORRHAGE [None]
